FAERS Safety Report 13858479 (Version 1)
Quarter: 2017Q3

REPORT INFORMATION
  Report Type: Spontaneous
  Country: CA (occurrence: CA)
  Receive Date: 20170811
  Receipt Date: 20170811
  Transmission Date: 20171127
  Serious: Yes (Death, Hospitalization)
  Sender: FDA-Public Use
  Company Number: CA-ASTRAZENECA-2017SE81044

PATIENT
  Age: 60 Year
  Sex: Female

DRUGS (20)
  1. NOVOLIN [Concomitant]
     Active Substance: INSULIN HUMAN
     Route: 058
  2. VENLAFAXINE [Concomitant]
     Active Substance: VENLAFAXINE HYDROCHLORIDE
  3. MOMETASONE FUROATE. [Concomitant]
     Active Substance: MOMETASONE FUROATE
  4. ATROVENT [Concomitant]
     Active Substance: IPRATROPIUM BROMIDE
  5. MORPHINE [Concomitant]
     Active Substance: MORPHINE
  6. RABEPRAZOLE [Concomitant]
     Active Substance: RABEPRAZOLE
  7. SENNOSIDE [Concomitant]
     Active Substance: SENNOSIDES
  8. TAMOXIFEN [Concomitant]
     Active Substance: TAMOXIFEN
  9. AMITRIPTYLINE [Concomitant]
     Active Substance: AMITRIPTYLINE
  10. FORXIGA [Suspect]
     Active Substance: DAPAGLIFLOZIN
     Indication: TYPE 2 DIABETES MELLITUS
     Route: 048
  11. CALCIUM [Concomitant]
     Active Substance: CALCIUM
  12. CLONAZEPAM. [Concomitant]
     Active Substance: CLONAZEPAM
  13. ROSUVASTATIN. [Concomitant]
     Active Substance: ROSUVASTATIN
  14. VENTOLIN [Concomitant]
     Active Substance: ALBUTEROL SULFATE
  15. AZITHROMYCIN ANHYDROUS. [Concomitant]
     Active Substance: AZITHROMYCIN ANHYDROUS
  16. VITAMIN B12 [Concomitant]
     Active Substance: CYANOCOBALAMIN
  17. ADVAIR HFA [Concomitant]
     Active Substance: FLUTICASONE PROPIONATE\SALMETEROL XINAFOATE
  18. ASA [Concomitant]
     Active Substance: ASPIRIN
  19. NOVOLIN [Concomitant]
     Active Substance: INSULIN HUMAN
     Route: 030
  20. TRAMACET [Concomitant]
     Active Substance: ACETAMINOPHEN\TRAMADOL

REACTIONS (2)
  - Diabetic ketoacidosis [Fatal]
  - Blood glucose normal [Fatal]
